FAERS Safety Report 14127774 (Version 1)
Quarter: 2017Q4

REPORT INFORMATION
  Report Type: Spontaneous
  Country: US (occurrence: None)
  Receive Date: 20171025
  Receipt Date: 20171025
  Transmission Date: 20180321
  Serious: No
  Sender: FDA-Public Use
  Company Number: None

PATIENT
  Sex: Female

DRUGS (1)
  1. AMBIEN [Suspect]
     Active Substance: ZOLPIDEM TARTRATE

REACTIONS (15)
  - Confusional state [None]
  - Hip fracture [None]
  - Dyspnoea [None]
  - Pain [None]
  - Back pain [None]
  - Restless legs syndrome [None]
  - Anxiety [None]
  - Middle insomnia [None]
  - Violence-related symptom [None]
  - Mobility decreased [None]
  - Myalgia [None]
  - Arthralgia [None]
  - Somnolence [None]
  - Drug withdrawal syndrome [None]
  - Thinking abnormal [None]
